FAERS Safety Report 25893476 (Version 1)
Quarter: 2025Q4

REPORT INFORMATION
  Report Type: Spontaneous
  Country: EU (occurrence: EU)
  Receive Date: 20251008
  Receipt Date: 20251008
  Transmission Date: 20260117
  Serious: Yes (Life-Threatening)
  Sender: EXELIXIS
  Company Number: EU-IPSEN Group, Research and Development-2025-24565

PATIENT
  Age: 63 Year
  Sex: Male
  Weight: 89 kg

DRUGS (1)
  1. CABOMETYX [Suspect]
     Active Substance: CABOZANTINIB S-MALATE
     Indication: Renal cancer stage IV
     Dosage: 40 MG, QD
     Route: 048
     Dates: start: 20250913, end: 20250919

REACTIONS (1)
  - Acute myocardial infarction [Recovering/Resolving]

NARRATIVE: CASE EVENT DATE: 20250918
